FAERS Safety Report 4452739-X (Version None)
Quarter: 2004Q3

REPORT INFORMATION
  Report Type: 
  Country: None (occurrence: None)
  Receive Date: 20040813
  Receipt Date: 20040426
  Transmission Date: 20050211
  Serious: No
  Sender: FDA-Public Use
  Company Number: S04-USA-02907-01

PATIENT

DRUGS (2)
  1. NAMENDA [Suspect]
     Dosage: 5 MG QD PO
     Route: 048
  2. NAMENDA [Suspect]
     Dosage: 5 MG QD PO
     Route: 048

REACTIONS (1)
  - PSYCHOTIC DISORDER [None]
